FAERS Safety Report 17845081 (Version 1)
Quarter: 2020Q2

REPORT INFORMATION
  Report Type: Spontaneous
  Country: US (occurrence: US)
  Receive Date: 20200530
  Receipt Date: 20200530
  Transmission Date: 20200714
  Serious: Yes (Other)
  Sender: FDA-Public Use
  Company Number: None

PATIENT
  Age: 69 Year
  Sex: Female
  Weight: 72 kg

DRUGS (1)
  1. REMDESIVIR. [Suspect]
     Active Substance: REMDESIVIR
     Indication: COVID-19
     Route: 040
     Dates: start: 20200528

REACTIONS (4)
  - Laryngeal oedema [None]
  - Hypersensitivity [None]
  - Periorbital swelling [None]
  - Peripheral swelling [None]

NARRATIVE: CASE EVENT DATE: 20200529
